FAERS Safety Report 8022906-7 (Version None)
Quarter: 2011Q4

REPORT INFORMATION
  Report Type: 
  Country: None (occurrence: None)
  Receive Date: 20111230
  Receipt Date: 20111219
  Transmission Date: 20120403
  Serious: Yes (Hospitalization, Other)
  Sender: FDA-Public Use
  Company Number: JPI-P-012240

PATIENT
  Age: 77 Year
  Sex: Female
  Weight: 138 kg

DRUGS (2)
  1. XYREM [Suspect]
     Indication: CATAPLEXY
     Dosage: 4.5 GM (2.25 GM,2 IN 1 D),ORAL,  6 GM (3 GM,2 IN 1 D),ORAL,
     Route: 048
     Dates: start: 20030623
  2. XYREM [Suspect]
     Indication: CATAPLEXY
     Dosage: 4.5 GM (2.25 GM,2 IN 1 D),ORAL,  6 GM (3 GM,2 IN 1 D),ORAL,
     Route: 048
     Dates: start: 20101201

REACTIONS (16)
  - WEIGHT DECREASED [None]
  - LEUKAEMIA [None]
  - GASTROINTESTINAL DISORDER [None]
  - VOMITING [None]
  - MYOCARDIAL INFARCTION [None]
  - IRRITABLE BOWEL SYNDROME [None]
  - FALL [None]
  - DEPRESSION [None]
  - BREAST CANCER FEMALE [None]
  - CEREBROVASCULAR ACCIDENT [None]
  - NIGHT SWEATS [None]
  - TREMOR [None]
  - BALANCE DISORDER [None]
  - MACULAR DEGENERATION [None]
  - BONE LESION [None]
  - CONDITION AGGRAVATED [None]
